FAERS Safety Report 9263099 (Version 2)
Quarter: 2013Q2

REPORT INFORMATION
  Report Type: Spontaneous
  Country: IT (occurrence: IT)
  Receive Date: 20130430
  Receipt Date: 20130517
  Transmission Date: 20140414
  Serious: Yes (Hospitalization)
  Sender: FDA-Public Use
  Company Number: IT-BRISTOL-MYERS SQUIBB COMPANY-18831735

PATIENT
  Age: 87 Year
  Sex: Female

DRUGS (5)
  1. COUMADIN TABS 5 MG [Suspect]
     Indication: ATRIAL FIBRILLATION
     Dosage: INTERRUPTED ON 22MAR2013
     Route: 048
     Dates: start: 20130117
  2. FUROSEMIDE [Concomitant]
  3. SIMVASTATIN [Concomitant]
  4. LEVODOPA [Concomitant]
  5. DILZENE [Concomitant]
     Dosage: TABLET

REACTIONS (3)
  - Epistaxis [Recovered/Resolved]
  - Fall [Recovered/Resolved]
  - Head injury [Recovered/Resolved]
